FAERS Safety Report 4926189-3 (Version None)
Quarter: 2006Q1

REPORT INFORMATION
  Report Type: 
  Country: None (occurrence: None)
  Receive Date: 20060224
  Receipt Date: 20060224
  Transmission Date: 20060701
  Serious: No
  Sender: FDA-Public Use
  Company Number: None

PATIENT
  Age: 53 Year
  Sex: Female
  Weight: 63.5036 kg

DRUGS (1)
  1. ORAL B REMBRANT COMPLETE PREMIUM WHITENING TOOTHPASTE WITH FLOURIDE FR [Suspect]

REACTIONS (11)
  - CHAPPED LIPS [None]
  - GINGIVAL PAIN [None]
  - GINGIVITIS [None]
  - LIP DISORDER [None]
  - LIP HAEMORRHAGE [None]
  - MALAISE [None]
  - ORAL MUCOSAL EXFOLIATION [None]
  - ORAL PAIN [None]
  - PHARMACEUTICAL PRODUCT COMPLAINT [None]
  - RASH PUSTULAR [None]
  - STEVENS-JOHNSON SYNDROME [None]
